FAERS Safety Report 9360626 (Version 1)
Quarter: 2013Q2

REPORT INFORMATION
  Report Type: Spontaneous
  Country: GB (occurrence: GB)
  Receive Date: 20130621
  Receipt Date: 20130621
  Transmission Date: 20140414
  Serious: Yes (Hospitalization)
  Sender: FDA-Public Use
  Company Number: GB-NOVOPROD-380582

PATIENT
  Age: 59 Year
  Sex: Male
  Weight: 95.7 kg

DRUGS (3)
  1. VICTOZA [Suspect]
     Indication: DIABETES MELLITUS
     Dosage: UNK
     Route: 065
  2. HUMULIN I [Concomitant]
     Indication: PRODUCT USED FOR UNKNOWN INDICATION
     Dosage: UNK
     Route: 065
  3. METFORMIN [Concomitant]
     Indication: PRODUCT USED FOR UNKNOWN INDICATION
     Dosage: 1 G, BID
     Route: 065

REACTIONS (1)
  - Cholecystitis [Recovered/Resolved]
